FAERS Safety Report 8790136 (Version 3)
Quarter: 2012Q4

REPORT INFORMATION
  Report Type: 
  Country: US (occurrence: US)
  Receive Date: 20120917
  Receipt Date: 20121217
  Transmission Date: 20130627
  Serious: Yes (Other)
  Sender: FDA-Public Use
  Company Number: US-009507513-1208USA007220

PATIENT
  Sex: Female

DRUGS (4)
  1. PEG-INTRON [Suspect]
     Indication: HEPATITIS C
     Dosage: Redipen
     Dates: start: 20120622
  2. RIBAVIRIN [Suspect]
     Indication: HEPATITIS C
     Dosage: 6 DF per day
     Dates: start: 20120622
  3. RIBAVIRIN [Suspect]
     Dosage: 3 DF per day
  4. TELAPREVIR [Concomitant]
     Indication: HEPATITIS C
     Dosage: UNK
     Dates: start: 20120622, end: 20120922

REACTIONS (19)
  - Pneumonia [Recovering/Resolving]
  - Hypothyroidism [Unknown]
  - Loss of consciousness [Unknown]
  - Ear pain [Unknown]
  - Amnesia [Unknown]
  - Crying [Unknown]
  - Weight increased [Unknown]
  - Injection site pain [Unknown]
  - Memory impairment [Unknown]
  - Visual impairment [Unknown]
  - Dizziness [Unknown]
  - Asthenia [Unknown]
  - Depression [Unknown]
  - Fatigue [Unknown]
  - Dyspnoea [Unknown]
  - Anaemia [Unknown]
  - Bronchitis [Recovering/Resolving]
  - Depression [Unknown]
  - Irritability [Unknown]
